FAERS Safety Report 25935022 (Version 1)
Quarter: 2025Q4

REPORT INFORMATION
  Report Type: Spontaneous
  Country: MX (occurrence: MX)
  Receive Date: 20251017
  Receipt Date: 20251017
  Transmission Date: 20260118
  Serious: Yes (Other)
  Sender: ELI LILLY AND COMPANY
  Company Number: MX-ELI_LILLY_AND_COMPANY-MX202510009847

PATIENT
  Age: 49 Year
  Sex: Male

DRUGS (1)
  1. TALTZ [Suspect]
     Active Substance: IXEKIZUMAB
     Indication: Spondyloarthropathy
     Dosage: 80 MG, MONTHLY (1/M)
     Route: 058
     Dates: start: 2025

REACTIONS (1)
  - Platelet count increased [Unknown]
